FAERS Safety Report 15095527 (Version 1)
Quarter: 2018Q3

REPORT INFORMATION
  Report Type: Spontaneous
  Country: IT (occurrence: IT)
  Receive Date: 20180702
  Receipt Date: 20180702
  Transmission Date: 20181010
  Serious: Yes (Other)
  Sender: FDA-Public Use
  Company Number: IT-TEVA-2018-IT-918197

PATIENT
  Age: 20 Year
  Sex: Male
  Weight: 44 kg

DRUGS (5)
  1. VEPESID [Suspect]
     Active Substance: ETOPOSIDE
     Indication: PERIPHERAL NERVE SHEATH TUMOUR MALIGNANT
     Route: 042
     Dates: start: 20171009, end: 20171011
  2. TRIMETON [Concomitant]
     Active Substance: CHLORPHENIRAMINE MALEATE
     Indication: PROPHYLAXIS
     Dosage: 10 MILLIGRAM DAILY;
     Route: 042
     Dates: start: 20171009, end: 20171011
  3. CARBOPLATIN. [Suspect]
     Active Substance: CARBOPLATIN
     Indication: PERIPHERAL NERVE SHEATH TUMOUR MALIGNANT
     Route: 042
     Dates: start: 20171009, end: 20171011
  4. ZOFRAN [Concomitant]
     Active Substance: ONDANSETRON HYDROCHLORIDE
     Indication: PROPHYLAXIS
     Dosage: 4.5 MILLIGRAM DAILY;
     Route: 042
     Dates: start: 20171009, end: 20171011
  5. GABAPENTIN. [Concomitant]
     Active Substance: GABAPENTIN
     Indication: NEUROPATHY PERIPHERAL
     Dosage: 300 MILLIGRAM DAILY;
     Route: 048
     Dates: start: 20170713

REACTIONS (1)
  - Herpes zoster [Recovered/Resolved]

NARRATIVE: CASE EVENT DATE: 20171014
